FAERS Safety Report 12543790 (Version 1)
Quarter: 2016Q3

REPORT INFORMATION
  Report Type: Spontaneous
  Country: US (occurrence: US)
  Receive Date: 20160711
  Receipt Date: 20160711
  Transmission Date: 20161109
  Serious: No
  Sender: FDA-Public Use
  Company Number: US-JAZZ-2016-US-000167

PATIENT
  Sex: Female

DRUGS (8)
  1. EXCEDRIN MIGRAINE [Concomitant]
     Active Substance: ACETAMINOPHEN\ASPIRIN\CAFFEINE
  2. TYLENOL [Concomitant]
     Active Substance: ACETAMINOPHEN
  3. XYREM [Suspect]
     Active Substance: SODIUM OXYBATE
     Indication: CATAPLEXY
  4. METHOTREXATE. [Concomitant]
     Active Substance: METHOTREXATE
  5. CHOLESTYRAMINE. [Concomitant]
     Active Substance: CHOLESTYRAMINE
  6. IBUPROFEN. [Concomitant]
     Active Substance: IBUPROFEN
  7. FOLIC ACID. [Concomitant]
     Active Substance: FOLIC ACID
  8. XYREM [Suspect]
     Active Substance: SODIUM OXYBATE
     Indication: NARCOLEPSY
     Dosage: 2.25 G, BID
     Route: 048
     Dates: start: 201512

REACTIONS (1)
  - Sinusitis [Unknown]
